FAERS Safety Report 8408395-9 (Version None)
Quarter: 2012Q2

REPORT INFORMATION
  Report Type: 
  Country: None (occurrence: None)
  Receive Date: 20120604
  Receipt Date: 20120524
  Transmission Date: 20120825
  Serious: Yes (Hospitalization, Disabling, Other)
  Sender: FDA-Public Use
  Company Number: US-ELI_LILLY_AND_COMPANY-US201001001208

PATIENT
  Age: 63 Year
  Sex: Male

DRUGS (8)
  1. HUMALOG [Suspect]
     Indication: TYPE 2 DIABETES MELLITUS
     Dosage: UNK
  2. ZOLOFT [Concomitant]
     Indication: DEPRESSION
  3. SIMVASTATIN [Concomitant]
     Dosage: 40 MG, UNKNOWN
  4. LANTUS [Concomitant]
     Dosage: 70 U, EACH EVENING
  5. LANTUS [Concomitant]
     Dosage: 20 U, EACH EVENING
     Dates: start: 20090701
  6. HUMALOG [Suspect]
     Dosage: UNK, AS NEEDED
     Dates: start: 20070601
  7. LISINOPRIL                              /USA/ [Concomitant]
  8. GABAPENTIN [Concomitant]
     Indication: FIBROMYALGIA

REACTIONS (24)
  - GAIT DISTURBANCE [None]
  - CARPAL TUNNEL SYNDROME [None]
  - EXPIRED DRUG ADMINISTERED [None]
  - PAIN [None]
  - BLOOD GLUCOSE DECREASED [None]
  - ARTHRITIS [None]
  - PROSTATIC OPERATION [None]
  - WEIGHT INCREASED [None]
  - FOOD POISONING [None]
  - PARAESTHESIA [None]
  - BLOOD PRESSURE INCREASED [None]
  - VERTIGO [None]
  - DYSSTASIA [None]
  - NEUROPATHY PERIPHERAL [None]
  - DRUG INEFFECTIVE [None]
  - LOSS OF CONSCIOUSNESS [None]
  - FACIAL BONES FRACTURE [None]
  - FALL [None]
  - CONCUSSION [None]
  - DIZZINESS [None]
  - VISION BLURRED [None]
  - BLOOD GLUCOSE INCREASED [None]
  - MENINGITIS VIRAL [None]
  - FATIGUE [None]
